FAERS Safety Report 7831492-3 (Version None)
Quarter: 2011Q4

REPORT INFORMATION
  Report Type: 
  Country: None (occurrence: None)
  Receive Date: 20111021
  Receipt Date: 20111021
  Transmission Date: 20120403
  Serious: Yes (Life-Threatening, Other)
  Sender: FDA-Public Use
  Company Number: None

PATIENT
  Age: 23 Year
  Sex: Male
  Weight: 81.646 kg

DRUGS (1)
  1. PROPECIA [Suspect]
     Indication: ANDROGENETIC ALOPECIA
     Dosage: 1MG
     Route: 048
     Dates: start: 20110724, end: 20110728

REACTIONS (5)
  - LOSS OF LIBIDO [None]
  - INSOMNIA [None]
  - HYPOGONADISM [None]
  - MIDDLE INSOMNIA [None]
  - ERECTILE DYSFUNCTION [None]
